FAERS Safety Report 26034283 (Version 1)
Quarter: 2025Q4

REPORT INFORMATION
  Report Type: Spontaneous
  Country: US (occurrence: None)
  Receive Date: 20251111
  Receipt Date: 20251111
  Transmission Date: 20260118
  Serious: Yes (Hospitalization)
  Sender: FDA-CTU
  Company Number: None

PATIENT
  Age: 51 Year
  Sex: Female

DRUGS (1)
  1. KESIMPTA [Suspect]
     Active Substance: OFATUMUMAB
     Indication: Multiple sclerosis
     Dosage: 20 MG MONTHLY SUBCUTANEOUS
     Route: 058
     Dates: start: 20250617

REACTIONS (3)
  - Fall [None]
  - Urinary incontinence [None]
  - Anal incontinence [None]

NARRATIVE: CASE EVENT DATE: 20250911
